FAERS Safety Report 5699605-X (Version None)
Quarter: 2008Q2

REPORT INFORMATION
  Report Type: 
  Country: None (occurrence: None)
  Receive Date: 20080410
  Receipt Date: 20080307
  Transmission Date: 20081010
  Serious: Yes (Death)
  Sender: FDA-Public Use
  Company Number: HU-BAYER-200816285GPV

PATIENT

DRUGS (3)
  1. FLUDARABINE [Suspect]
     Route: 048
  2. FLUDARABINE [Suspect]
     Route: 048
  3. CYCLOPHOSPHAMIDE [Suspect]
     Indication: CHRONIC LYMPHOCYTIC LEUKAEMIA
     Route: 065

REACTIONS (1)
  - INFECTION [None]
